FAERS Safety Report 22981799 (Version 4)
Quarter: 2023Q4

REPORT INFORMATION
  Report Type: Spontaneous
  Country: BR (occurrence: BR)
  Receive Date: 20230925
  Receipt Date: 20231013
  Transmission Date: 20240110
  Serious: Yes (Other)
  Sender: FDA-Public Use
  Company Number: BR-009507513-2309BRA007188

PATIENT
  Age: 61 Year
  Sex: Female
  Weight: 60 kg

DRUGS (6)
  1. KEYTRUDA [Suspect]
     Active Substance: PEMBROLIZUMAB
     Indication: Breast cancer
     Dosage: UNK
     Dates: start: 2019
  2. DIAZEPAM [Concomitant]
     Active Substance: DIAZEPAM
     Indication: Anxiety
     Dosage: 10 MG, BID OR TID
  3. DIAZEPAM [Concomitant]
     Active Substance: DIAZEPAM
     Indication: Nervousness
  4. PROPANOLOL [PROPRANOLOL HYDROCHLORIDE] [Concomitant]
     Indication: Blood pressure abnormal
     Dosage: 40 MILLIGRAMS TID OR BID
  5. DOMPERIDONE [Concomitant]
     Active Substance: DOMPERIDONE
     Indication: Gastrooesophageal reflux disease
     Dosage: 40 MILLIGRAM, BID
  6. DOMPERIDONE [Concomitant]
     Active Substance: DOMPERIDONE
     Dosage: 40 MILLIGRAM, BID

REACTIONS (22)
  - Diabetes mellitus [Unknown]
  - Mastectomy [Unknown]
  - Haemorrhage [Unknown]
  - Bone cancer [Unknown]
  - Metastases to bone [Unknown]
  - Limb injury [Unknown]
  - Gait disturbance [Unknown]
  - Weight decreased [Unknown]
  - Stress [Unknown]
  - Arthralgia [Unknown]
  - Ear pain [Unknown]
  - Hypersensitivity [Unknown]
  - Epistaxis [Not Recovered/Not Resolved]
  - Gastrooesophageal reflux disease [Unknown]
  - Hypersensitivity [Unknown]
  - Pain in extremity [Unknown]
  - Bone density decreased [Unknown]
  - Malaise [Unknown]
  - Pain [Unknown]
  - Urticaria [Unknown]
  - Impaired work ability [Unknown]
  - Radiotherapy [Unknown]

NARRATIVE: CASE EVENT DATE: 20220101
